FAERS Safety Report 5822383-8 (Version None)
Quarter: 2008Q3

REPORT INFORMATION
  Report Type: 
  Country: None (occurrence: None)
  Receive Date: 20080723
  Receipt Date: 20080723
  Transmission Date: 20090109
  Serious: Yes (Other)
  Sender: FDA-Public Use
  Company Number: None

PATIENT

DRUGS (1)
  1. LEVAQUIN [Suspect]
     Dates: start: 20080612

REACTIONS (7)
  - DYSPHAGIA [None]
  - DYSPHONIA [None]
  - DYSPNOEA [None]
  - LACERATION [None]
  - LARYNGEAL INJURY [None]
  - LARYNGEAL NEOPLASM [None]
  - LARYNGEAL OEDEMA [None]
